FAERS Safety Report 5012314-5 (Version None)
Quarter: 2006Q2

REPORT INFORMATION
  Report Type: 
  Country: None (occurrence: None)
  Receive Date: 20060525
  Receipt Date: 20060525
  Transmission Date: 20061013
  Serious: No
  Sender: FDA-Public Use
  Company Number: None

PATIENT
  Age: 65 Year
  Sex: Male
  Weight: 116.5744 kg

DRUGS (1)
  1. SELSUN BLUE SHAMPOO [Suspect]
     Indication: SEBORRHOEIC DERMATITIS
     Dosage: USE TWICE A WEEK

REACTIONS (6)
  - ACCIDENTAL EXPOSURE [None]
  - CHEMICAL BURNS OF EYE [None]
  - CORNEAL ABSCESS [None]
  - DRY EYE [None]
  - EYE PAIN [None]
  - VISION BLURRED [None]
